FAERS Safety Report 12281374 (Version 1)
Quarter: 2016Q2

REPORT INFORMATION
  Report Type: Spontaneous
  Country: US (occurrence: None)
  Receive Date: 20160418
  Receipt Date: 20160418
  Transmission Date: 20160815
  Serious: No
  Sender: FDA-Public Use
  Company Number: None

PATIENT
  Age: 38 Year
  Sex: Female
  Weight: 58.97 kg

DRUGS (1)
  1. AFRIN [Suspect]
     Active Substance: OXYMETAZOLINE
     Indication: NASOPHARYNGITIS
     Route: 055
     Dates: start: 20160412, end: 20160414

REACTIONS (6)
  - Swelling face [None]
  - Pruritus [None]
  - Nasal congestion [None]
  - Skin texture abnormal [None]
  - Hypophagia [None]
  - Stomatitis [None]

NARRATIVE: CASE EVENT DATE: 20160412
